FAERS Safety Report 6925692-4 (Version None)
Quarter: 2010Q3

REPORT INFORMATION
  Report Type: 
  Country: None (occurrence: None)
  Receive Date: 20100816
  Receipt Date: 20100810
  Transmission Date: 20110219
  Serious: Yes (Hospitalization)
  Sender: FDA-Public Use
  Company Number: A0874891A

PATIENT
  Age: 69 Year
  Sex: Female

DRUGS (3)
  1. CARVEDILOL [Suspect]
     Indication: BLOOD PRESSURE
     Dosage: 1TAB TWICE PER DAY
     Route: 048
     Dates: start: 20100101, end: 20100101
  2. HYDRALAZINE [Concomitant]
  3. PLAVIX [Concomitant]

REACTIONS (2)
  - BLOOD PRESSURE INCREASED [None]
  - DRUG INEFFECTIVE [None]
